FAERS Safety Report 7822145-6 (Version None)
Quarter: 2011Q4

REPORT INFORMATION
  Report Type: 
  Country: None (occurrence: None)
  Receive Date: 20111018
  Receipt Date: 20110715
  Transmission Date: 20120403
  Serious: No
  Sender: FDA-Public Use
  Company Number: US-ASTRAZENECA-2011SE42660

PATIENT
  Age: 69 Year
  Sex: Female
  Weight: 67.1 kg

DRUGS (2)
  1. SYMBICORT [Suspect]
     Dosage: 80 MCG, 2 PUFFS (TOTAL DAILY DOSE: 160 MCG),DAILY
     Route: 055
     Dates: start: 20110629, end: 20110714
  2. SYMBICORT [Suspect]
     Indication: ASTHMA
     Dosage: 160 MCG, 2 PUFFS (TOTAL DAILY DOSE: 320 MCG) DAILY
     Route: 055
     Dates: end: 20110629

REACTIONS (2)
  - DRUG DOSE OMISSION [None]
  - FATIGUE [None]
